FAERS Safety Report 16372780 (Version 3)
Quarter: 2021Q4

REPORT INFORMATION
  Report Type: Spontaneous
  Country: US (occurrence: US)
  Receive Date: 20190530
  Receipt Date: 20211025
  Transmission Date: 20220303
  Serious: Yes (Life-Threatening, Hospitalization, Other)
  Sender: FDA-Public Use
  Company Number: US-MYLANLABS-2019M1050924

PATIENT
  Age: 9 Month
  Sex: Male

DRUGS (1)
  1. FENTANYL [Suspect]
     Active Substance: FENTANYL
     Indication: Product used for unknown indication
     Dosage: THE INFANT EXPOSED TO CARETAKER^S TRANSDERMAL PATCH ???..
     Route: 065

REACTIONS (8)
  - Accidental exposure to product by child [Recovering/Resolving]
  - Toxicity to various agents [Recovering/Resolving]
  - Brain oedema [Recovering/Resolving]
  - Hydrocephalus [Recovering/Resolving]
  - Neurotoxicity [Recovering/Resolving]
  - Encephalomalacia [Recovering/Resolving]
  - Apraxia [Recovering/Resolving]
  - Dysmetria [Recovering/Resolving]
